FAERS Safety Report 20916788 (Version 2)
Quarter: 2022Q3

REPORT INFORMATION
  Report Type: Spontaneous
  Country: US (occurrence: US)
  Receive Date: 20220605
  Receipt Date: 20220909
  Transmission Date: 20221027
  Serious: Yes (Other)
  Sender: FDA-Public Use
  Company Number: US-009507513-2205USA008143

PATIENT
  Age: 36 Year
  Sex: Female

DRUGS (2)
  1. STEGLATRO [Suspect]
     Active Substance: ERTUGLIFLOZIN PIDOLATE
     Indication: Type 2 diabetes mellitus
     Dosage: 15 MILLIGRAM, QD
     Route: 048
  2. DULAGLUTIDE [Concomitant]
     Active Substance: DULAGLUTIDE
     Indication: Type 2 diabetes mellitus
     Dosage: 2 MG /0.85 ML AS DIRECTED
     Route: 058

REACTIONS (1)
  - Euglycaemic diabetic ketoacidosis [Recovered/Resolved]
